FAERS Safety Report 17006768 (Version 1)
Quarter: 2019Q4

REPORT INFORMATION
  Report Type: Spontaneous
  Country: US (occurrence: US)
  Receive Date: 20191107
  Receipt Date: 20191107
  Transmission Date: 20200122
  Serious: No
  Sender: FDA-Public Use
  Company Number: US-TARO-2019TAR00163

PATIENT
  Age: 79 Year
  Sex: Female
  Weight: 63.49 kg

DRUGS (4)
  1. MUPIROCIN OINTMENT USP 2% [Suspect]
     Active Substance: MUPIROCIN
     Indication: RASH
     Dosage: UNK UNK, 2X/DAY
     Route: 061
     Dates: start: 20190215
  2. WARFARIN [Concomitant]
     Active Substance: WARFARIN
     Dosage: 3 MG, 1X/DAY
  3. MINOCYCLINE (TORRENT) [Suspect]
     Active Substance: MINOCYCLINE HYDROCHLORIDE
     Indication: RASH
     Dosage: 100 MG, 1X/DAY
     Dates: start: 20190215
  4. LEVOTHYROXINE. [Concomitant]
     Active Substance: LEVOTHYROXINE
     Dosage: 88 ?G, 1X/DAY

REACTIONS (5)
  - Inappropriate schedule of product administration [Not Recovered/Not Resolved]
  - Application site pruritus [Not Recovered/Not Resolved]
  - Lip exfoliation [Not Recovered/Not Resolved]
  - Product quality issue [Not Recovered/Not Resolved]
  - Application site swelling [Not Recovered/Not Resolved]

NARRATIVE: CASE EVENT DATE: 20190215
